FAERS Safety Report 11668410 (Version 1)
Quarter: 2015Q4

REPORT INFORMATION
  Report Type: Spontaneous
  Country: US (occurrence: US)
  Receive Date: 20151027
  Receipt Date: 20151027
  Transmission Date: 20160304
  Serious: No
  Sender: FDA-Public Use
  Company Number: US-ELI_LILLY_AND_COMPANY-US201003005500

PATIENT
  Sex: Female

DRUGS (1)
  1. FORTEO [Suspect]
     Active Substance: TERIPARATIDE
     Indication: OSTEOPOROSIS
     Dosage: 20 UG, DAILY (1/D)
     Dates: start: 200906

REACTIONS (6)
  - Muscular weakness [Unknown]
  - Pain in extremity [Recovered/Resolved]
  - Balance disorder [Unknown]
  - Bone pain [Recovered/Resolved]
  - Oedema peripheral [Unknown]
  - Dizziness [Unknown]
